FAERS Safety Report 20704278 (Version 4)
Quarter: 2022Q2

REPORT INFORMATION
  Report Type: Report from Study
  Country: US (occurrence: US)
  Receive Date: 20220413
  Receipt Date: 20220620
  Transmission Date: 20220721
  Serious: Yes (Hospitalization, Other)
  Sender: FDA-Public Use
  Company Number: US-GILEAD-2022-0568059

PATIENT
  Sex: Female

DRUGS (5)
  1. AMBRISENTAN [Suspect]
     Active Substance: AMBRISENTAN
     Indication: Pulmonary arterial hypertension
     Dosage: 10 MG, QD
     Route: 048
     Dates: start: 20190613
  2. AMBRISENTAN [Suspect]
     Active Substance: AMBRISENTAN
     Indication: Pulmonary hypertension
  3. ORENITRAM [Suspect]
     Active Substance: TREPROSTINIL
     Indication: Product used for unknown indication
     Dosage: 1.125 MG
     Route: 065
     Dates: start: 20220121
  4. SILDENAFIL [Concomitant]
     Active Substance: SILDENAFIL
  5. MIDODRINE BIOGARAN [Concomitant]

REACTIONS (16)
  - Right ventricular failure [Not Recovered/Not Resolved]
  - Cardiac flutter [Not Recovered/Not Resolved]
  - Fluid retention [Unknown]
  - Unevaluable event [Unknown]
  - Heart rate increased [Not Recovered/Not Resolved]
  - Dry mouth [Not Recovered/Not Resolved]
  - Sciatica [Not Recovered/Not Resolved]
  - Fall [Unknown]
  - Oxygen consumption increased [Not Recovered/Not Resolved]
  - Presyncope [Unknown]
  - Dizziness [Not Recovered/Not Resolved]
  - Cough [Unknown]
  - Dyspnoea [Not Recovered/Not Resolved]
  - Dyspnoea exertional [Not Recovered/Not Resolved]
  - Hypotension [Not Recovered/Not Resolved]
  - Feeling hot [Not Recovered/Not Resolved]
